FAERS Safety Report 6885937-6 (Version None)
Quarter: 2010Q3

REPORT INFORMATION
  Report Type: 
  Country: None (occurrence: None)
  Receive Date: 20100729
  Receipt Date: 20080521
  Transmission Date: 20110219
  Serious: Yes (Death)
  Sender: FDA-Public Use
  Company Number: US-PFIZER INC-2008052547

PATIENT
  Sex: Male
  Weight: 87.5 kg

DRUGS (1)
  1. CELEBREX [Suspect]
     Indication: OSTEOARTHRITIS
     Route: 048
     Dates: end: 20020730

REACTIONS (1)
  - ACUTE MYOCARDIAL INFARCTION [None]
